FAERS Safety Report 21374787 (Version 1)
Quarter: 2022Q3

REPORT INFORMATION
  Report Type: Spontaneous
  Country: US (occurrence: US)
  Receive Date: 20220926
  Receipt Date: 20220926
  Transmission Date: 20221027
  Serious: No
  Sender: FDA-Public Use
  Company Number: US-ALLERGAN-2217577US

PATIENT
  Age: 38 Year
  Sex: Female

DRUGS (4)
  1. LEXAPRO [Suspect]
     Active Substance: ESCITALOPRAM OXALATE
     Indication: Product used for unknown indication
     Dosage: 5 MG, QD
     Route: 048
     Dates: start: 202205
  2. LEXAPRO [Suspect]
     Active Substance: ESCITALOPRAM OXALATE
     Dosage: UNK MG
     Route: 048
  3. LEXAPRO [Suspect]
     Active Substance: ESCITALOPRAM OXALATE
     Dosage: 10 MG, QD
     Route: 048
  4. LEXAPRO [Suspect]
     Active Substance: ESCITALOPRAM OXALATE
     Dosage: 2.5 MG
     Route: 048
     Dates: start: 2019

REACTIONS (14)
  - Morbid thoughts [Unknown]
  - Blood pressure increased [Unknown]
  - Limb discomfort [Unknown]
  - Arrhythmia [Unknown]
  - Pregnancy [Unknown]
  - Headache [Unknown]
  - Hyperhidrosis [Unknown]
  - Palpitations [Unknown]
  - Pain in extremity [Unknown]
  - Nausea [Unknown]
  - Weight increased [Unknown]
  - Yawning [Unknown]
  - Increased appetite [Unknown]
  - Dry mouth [Unknown]

NARRATIVE: CASE EVENT DATE: 20220501
